FAERS Safety Report 6017992-X (Version None)
Quarter: 2008Q4

REPORT INFORMATION
  Report Type: 
  Country: None (occurrence: None)
  Receive Date: 20081223
  Receipt Date: 20081219
  Transmission Date: 20090506
  Serious: Yes (Death, Life-Threatening)
  Sender: FDA-Public Use
  Company Number: B0485961A

PATIENT
  Age: 36 Year
  Sex: Male

DRUGS (17)
  1. ZIAGEN [Suspect]
     Indication: ACQUIRED IMMUNODEFICIENCY SYNDROME
     Route: 048
     Dates: start: 20021126, end: 20070317
  2. VIREAD [Suspect]
     Indication: ACQUIRED IMMUNODEFICIENCY SYNDROME
     Route: 048
     Dates: start: 20030520, end: 20061114
  3. EPIVIR [Suspect]
     Indication: ACQUIRED IMMUNODEFICIENCY SYNDROME
     Route: 048
     Dates: start: 20000919, end: 20070317
  4. RETROVIR [Suspect]
     Indication: ACQUIRED IMMUNODEFICIENCY SYNDROME
     Route: 048
     Dates: start: 20000919, end: 20061211
  5. NORVIR [Suspect]
     Indication: ACQUIRED IMMUNODEFICIENCY SYNDROME
     Dosage: 100MG AS DIRECTED
     Route: 048
     Dates: start: 20040407, end: 20070317
  6. NORVIR [Suspect]
     Indication: ACQUIRED IMMUNODEFICIENCY SYNDROME
     Dosage: 200MG UNKNOWN
     Route: 048
     Dates: start: 20030520, end: 20031110
  7. COTRIM [Suspect]
     Indication: ANTIFUNGAL PROPHYLAXIS
     Route: 048
     Dates: start: 20060401
  8. TIPRANAVIR [Suspect]
     Indication: DRUG USE FOR UNKNOWN INDICATION
     Dates: start: 20060131, end: 20060821
  9. DARUNAVIR [Suspect]
     Indication: DRUG USE FOR UNKNOWN INDICATION
     Dates: start: 20060822, end: 20070517
  10. UNKNOWN DRUG [Concomitant]
     Indication: ACQUIRED IMMUNODEFICIENCY SYNDROME
     Route: 048
     Dates: start: 20060131, end: 20060821
  11. UNKNOWN DRUG [Concomitant]
     Route: 048
     Dates: start: 20060822, end: 20070317
  12. ZITHROMAX [Concomitant]
     Indication: OPPORTUNISTIC INFECTION PROPHYLAXIS
     Route: 048
     Dates: start: 20020409
  13. PREZISTA [Concomitant]
     Indication: ACQUIRED IMMUNODEFICIENCY SYNDROME
     Route: 048
     Dates: start: 20070515
  14. KALLIDINOGENASE [Concomitant]
     Indication: DEAFNESS
     Route: 048
  15. ZYLORIC [Concomitant]
     Route: 048
  16. RABEPRAZOLE SODIUM [Concomitant]
     Route: 048
  17. DEPAKENE [Concomitant]
     Dosage: 24ML PER DAY
     Route: 048
     Dates: start: 20070514

REACTIONS (10)
  - AIDS ENCEPHALOPATHY [None]
  - ALTERED STATE OF CONSCIOUSNESS [None]
  - BLOOD CREATININE INCREASED [None]
  - BLOOD PRESSURE DECREASED [None]
  - BLOOD UREA INCREASED [None]
  - CONVULSION [None]
  - GENERAL PHYSICAL HEALTH DETERIORATION [None]
  - HYDROCEPHALUS [None]
  - NEPHROPATHY [None]
  - RENAL FAILURE CHRONIC [None]
